FAERS Safety Report 5646796-2 (Version None)
Quarter: 2008Q1

REPORT INFORMATION
  Report Type: 
  Country: None (occurrence: None)
  Receive Date: 20080228
  Receipt Date: 20080218
  Transmission Date: 20080703
  Serious: Yes (Death, Other)
  Sender: FDA-Public Use
  Company Number: FABR-1000104

PATIENT
  Age: 59 Year
  Sex: Male

DRUGS (2)
  1. FABRAZYME [Suspect]
     Indication: FABRY'S DISEASE
     Dosage: 55 MG, Q2W, INTRAVENOUS
     Route: 042
     Dates: start: 20041105, end: 20050606
  2. REPLAGAL (AGALSIDASE ALFA) [Suspect]
     Indication: FABRY'S DISEASE
     Dosage: 10.5 MG,
     Dates: start: 20071001, end: 20080123

REACTIONS (2)
  - C-REACTIVE PROTEIN INCREASED [None]
  - PYREXIA [None]
